FAERS Safety Report 21020611 (Version 2)
Quarter: 2022Q4

REPORT INFORMATION
  Report Type: Report from Study
  Country: RO (occurrence: RO)
  Receive Date: 20220629
  Receipt Date: 20221105
  Transmission Date: 20230113
  Serious: Yes (Hospitalization, Other)
  Sender: FDA-Public Use
  Company Number: RO-CELLTRION INC.-2022RO009852

PATIENT

DRUGS (7)
  1. TRASTUZUMAB [Suspect]
     Active Substance: TRASTUZUMAB
     Indication: Breast cancer
     Dosage: 8MG/KG, EVERY 3 WEEKS / LAST DOSE (584 MG) BEFORE SAE 20/APR/2022
     Route: 042
     Dates: start: 20220413
  2. ATEZOLIZUMAB [Suspect]
     Active Substance: ATEZOLIZUMAB
     Indication: Breast cancer
     Dosage: 1200 MG, EVERY 3 WEEKS / ON 13/APR/2022, RECEIVED LAST DOSE OF DRUG PRIOR TO SAE WAS 1200 MG
     Route: 042
     Dates: start: 20220131
  3. CARBOPLATIN [Suspect]
     Active Substance: CARBOPLATIN
     Indication: Breast cancer
     Dosage: EVERY 3 WEEKS / LAST DOSE (195MG) BEFORE SAE 20/04/2022
     Route: 042
     Dates: start: 20220413
  4. PACLITAXEL [Suspect]
     Active Substance: PACLITAXEL
     Indication: Breast cancer
     Dosage: 90 MG/M2, EVERY 3 WEEKS / ON 20/APR/2022 LAST DOSE (155MG ) BEFORE SAE. ON DAY 1 AND DAY 8 EVERY 3 W
     Route: 042
     Dates: start: 20220413
  5. PERTUZUMAB [Suspect]
     Active Substance: PERTUZUMAB
     Indication: Breast cancer
     Dosage: 840 MG EVERY 3 WEEKS / LAST DOSE (840MG) BEFORE SAE WAS GIVEN ON 20/04/2022
     Route: 042
     Dates: start: 20220413
  6. EPIRUBICIN [Suspect]
     Active Substance: EPIRUBICIN
     Indication: Breast cancer
     Dosage: ON 14/MAR/2022, 20/APR/2022, RECEIVED LAST DOSE (155MG) OF DRUG PRIOR TO SAE
     Route: 042
     Dates: start: 20220131
  7. CYCLOPHOSPHAMIDE [Suspect]
     Active Substance: CYCLOPHOSPHAMIDE
     Indication: Breast cancer
     Dosage: 600 MG, EVERY 3 WEEKS / ON 14/MAR/2022, 20/APR/2022, RECEIVED LAST DOSE OF DRUG PRIOR TO SAE WAS 103
     Route: 042
     Dates: start: 20220131

REACTIONS (2)
  - Anaemia [Recovered/Resolved]
  - Thrombocytopenia [Not Recovered/Not Resolved]

NARRATIVE: CASE EVENT DATE: 20220405
